FAERS Safety Report 21249064 (Version 2)
Quarter: 2023Q2

REPORT INFORMATION
  Report Type: Report from Study
  Country: DE (occurrence: DE)
  Receive Date: 20220824
  Receipt Date: 20230511
  Transmission Date: 20230722
  Serious: Yes (Death, Other)
  Sender: FDA-Public Use
  Company Number: DE-ROCHE-1901165

PATIENT
  Age: 70 Year
  Sex: Male

DRUGS (17)
  1. UNSPECIFIED INGREDIENT [Suspect]
     Active Substance: UNSPECIFIED INGREDIENT
     Dosage: NO DOSE GIVEN
  2. METHOTREXATE SODIUM [Suspect]
     Active Substance: METHOTREXATE SODIUM
     Indication: Rheumatoid arthritis
     Dosage: MTX 7.5
     Dates: start: 20180423
  3. METHOTREXATE SODIUM [Suspect]
     Active Substance: METHOTREXATE SODIUM
     Dosage: MTX 10.0
     Dates: start: 20151030
  4. METHOTREXATE SODIUM [Suspect]
     Active Substance: METHOTREXATE SODIUM
     Dosage: MTX
     Dates: start: 20180122
  5. METHOTREXATE SODIUM [Suspect]
     Active Substance: METHOTREXATE SODIUM
     Dosage: MTX 7.5
     Dates: start: 20170724
  6. METHOTREXATE SODIUM [Suspect]
     Active Substance: METHOTREXATE SODIUM
     Dosage: MTX 10.0
     Dates: start: 20160503
  7. OLUMIANT [Suspect]
     Active Substance: BARICITINIB
     Indication: Rheumatoid arthritis
     Dosage: 4 MG
     Dates: start: 201807
  8. TOCILIZUMAB [Suspect]
     Active Substance: TOCILIZUMAB
     Indication: Rheumatoid arthritis
     Dosage: 710 MG
     Dates: start: 20160503
  9. TOCILIZUMAB [Suspect]
     Active Substance: TOCILIZUMAB
     Dosage: 750 MG
     Dates: start: 20170724
  10. TOCILIZUMAB [Suspect]
     Active Substance: TOCILIZUMAB
     Dosage: 720 MG
     Dates: start: 20151030
  11. TOCILIZUMAB [Suspect]
     Active Substance: TOCILIZUMAB
     Dosage: 162 MG
     Dates: start: 20150518
  12. TOCILIZUMAB [Suspect]
     Active Substance: TOCILIZUMAB
     Dosage: 162 MG
     Dates: start: 20150817
  13. TOCILIZUMAB [Suspect]
     Active Substance: TOCILIZUMAB
     Indication: Rheumatoid arthritis
     Dosage: 162 MG
     Route: 058
     Dates: start: 20150518
  14. TOCILIZUMAB [Suspect]
     Active Substance: TOCILIZUMAB
     Dosage: 162 MG
     Route: 058
     Dates: start: 20150817
  15. TOCILIZUMAB [Suspect]
     Active Substance: TOCILIZUMAB
     Dosage: 720 MG
     Route: 058
     Dates: start: 20151030
  16. TOCILIZUMAB [Suspect]
     Active Substance: TOCILIZUMAB
     Dosage: 710 MG
     Route: 058
     Dates: start: 20160503
  17. TOCILIZUMAB [Suspect]
     Active Substance: TOCILIZUMAB
     Dosage: 750 MG
     Route: 058
     Dates: start: 20170724

REACTIONS (3)
  - Death [Fatal]
  - Acute lymphocytic leukaemia [Unknown]
  - Nausea [Unknown]

NARRATIVE: CASE EVENT DATE: 20160303
